FAERS Safety Report 4614626-3 (Version None)
Quarter: 2005Q2

REPORT INFORMATION
  Report Type: 
  Country: None (occurrence: None)
  Receive Date: 20050303
  Receipt Date: 20040722
  Transmission Date: 20051028
  Serious: Yes (Life-Threatening, Hospitalization, Disabling, Other)
  Sender: FDA-Public Use
  Company Number: WAES 0407USA01872

PATIENT
  Age: 65 Year
  Sex: Female

DRUGS (7)
  1. PRINIVIL [Suspect]
     Indication: HYPERTENSION
     Dosage: 40 MG/BID/PO
     Route: 048
     Dates: start: 20010101, end: 20040425
  2. PRINIVIL [Suspect]
     Indication: MICROALBUMINURIA
     Dosage: 40 MG/BID/PO
     Route: 048
     Dates: start: 20010101, end: 20040425
  3. EFFEXOR XR [Concomitant]
  4. NEXIUM [Concomitant]
  5. PLAVIX [Concomitant]
  6. HORMONES (UNSPECIFIED) [Concomitant]
  7. HYDROCHLOROTHIAZIDE [Concomitant]

REACTIONS (1)
  - ANGIONEUROTIC OEDEMA [None]
